FAERS Safety Report 9394761 (Version 1)
Quarter: 2013Q3

REPORT INFORMATION
  Report Type: Spontaneous
  Country: FR (occurrence: None)
  Receive Date: 20130705
  Receipt Date: 20130705
  Transmission Date: 20140515
  Serious: Yes (Life-Threatening, Hospitalization)
  Sender: FDA-Public Use
  Company Number: FK201302311

PATIENT
  Age: 24 Year
  Sex: Female

DRUGS (2)
  1. MORPHINE (MANUFACTURER UNKNOWN) (MORPHINE) (MORPHINE) [Suspect]
     Indication: PRODUCT USED FOR UNKNOWN INDICATION
  2. FENTANYL (FENTANYL) [Suspect]
     Indication: PRODUCT USED FOR UNKNOWN INDICATION
     Dosage: PECFENT SPRAY

REACTIONS (8)
  - Suicide attempt [None]
  - Coma [None]
  - Bradypnoea [None]
  - Miosis [None]
  - Cyanosis [None]
  - Cyanosis [None]
  - Blood pressure decreased [None]
  - Heart rate increased [None]
